FAERS Safety Report 21747499 (Version 1)
Quarter: 2022Q4

REPORT INFORMATION
  Report Type: Spontaneous
  Country: US (occurrence: US)
  Receive Date: 20221219
  Receipt Date: 20221219
  Transmission Date: 20230112
  Serious: No
  Sender: FDA-Public Use
  Company Number: US-NOVEN PHARMACEUTICALS, INC.-2022-NOV-US000714

PATIENT
  Sex: Female

DRUGS (2)
  1. ESTRADIOL [Suspect]
     Active Substance: ESTRADIOL
     Indication: Hot flush
     Dosage: 0.1 MILLIGRAM, TWICE A WEEK
     Route: 062
     Dates: start: 2022
  2. ESTRADIOL [Suspect]
     Active Substance: ESTRADIOL
     Dosage: 0.1 MILLIGRAM, UNKNOWN
     Route: 062

REACTIONS (3)
  - Adhesive tape use [Recovered/Resolved]
  - Product adhesion issue [Recovered/Resolved]
  - No adverse event [Unknown]

NARRATIVE: CASE EVENT DATE: 20220727
